FAERS Safety Report 8342851-7 (Version None)
Quarter: 2012Q2

REPORT INFORMATION
  Report Type: 
  Country: None (occurrence: None)
  Receive Date: 20120508
  Receipt Date: 20120503
  Transmission Date: 20120825
  Serious: No
  Sender: FDA-Public Use
  Company Number: US-PFIZER INC-2012109283

PATIENT

DRUGS (4)
  1. ALDACTONE [Concomitant]
  2. PROTONIX [Concomitant]
  3. CHANTIX [Suspect]
     Dosage: UNK
  4. PRISTIQ [Concomitant]

REACTIONS (1)
  - DRUG INEFFECTIVE [None]
